FAERS Safety Report 5162772-0 (Version None)
Quarter: 2006Q4

REPORT INFORMATION
  Report Type: 
  Country: None (occurrence: None)
  Receive Date: 20061121
  Receipt Date: 20061106
  Transmission Date: 20070319
  Serious: Yes (Hospitalization)
  Sender: FDA-Public Use
  Company Number: US-2006-025429

PATIENT
  Age: 70 Year
  Sex: Female
  Weight: 63.5 kg

DRUGS (10)
  1. BETASERON [Suspect]
     Indication: RELAPSING-REMITTING MULTIPLE SCLEROSIS
     Dosage: 8 MIU, EVERY 2D, SUBCUTANEOUS
     Route: 058
     Dates: start: 19931130, end: 20060711
  2. BETASERON [Suspect]
     Indication: RELAPSING-REMITTING MULTIPLE SCLEROSIS
     Dosage: 8 MIU, EVERY 2D, SUBCUTANEOUS
     Route: 058
     Dates: start: 20060723
  3. CARBAMAZEPINE [Concomitant]
  4. RANITIDINE [Concomitant]
  5. OXYBUTYNIN CHLORIDE [Concomitant]
  6. NEURONTIN [Concomitant]
  7. DIAZEPAM [Concomitant]
  8. NITROFURANTOIN [Concomitant]
  9. FOSAMAX [Concomitant]
  10. MICARDIS [Concomitant]

REACTIONS (3)
  - CHEST PAIN [None]
  - HYPERTENSION [None]
  - LOSS OF CONSCIOUSNESS [None]
